FAERS Safety Report 26019563 (Version 2)
Quarter: 2025Q4

REPORT INFORMATION
  Report Type: Spontaneous
  Country: US (occurrence: US)
  Receive Date: 20251110
  Receipt Date: 20251217
  Transmission Date: 20260118
  Serious: No
  Sender: GLAXOSMITHKLINE
  Company Number: US-GSK-US2025136560

PATIENT
  Sex: Female

DRUGS (8)
  1. BREO ELLIPTA [Suspect]
     Active Substance: FLUTICASONE FUROATE\VILANTEROL TRIFENATATE
     Indication: Chronic obstructive pulmonary disease
     Dosage: 1 INHALATION 100/25 MCG BY MOUTH EVERY MORNING AROUND 7 TO8 AM
  2. BREO ELLIPTA [Suspect]
     Active Substance: FLUTICASONE FUROATE\VILANTEROL TRIFENATATE
     Indication: Asthma
  3. BREO ELLIPTA [Suspect]
     Active Substance: FLUTICASONE FUROATE\VILANTEROL TRIFENATATE
     Indication: Chronic obstructive pulmonary disease
     Dosage: 1 PUFF(S), QD,1 INHALATION 200/25 MCG BY MOUTH EVERY MORNING AROUND 7 TO 8 AM
  4. BREO ELLIPTA [Suspect]
     Active Substance: FLUTICASONE FUROATE\VILANTEROL TRIFENATATE
     Indication: Asthma
  5. PREDNISONE [Concomitant]
     Active Substance: PREDNISONE
     Indication: Dyspnoea
     Dosage: 200 MG, PRN
  6. LOSARTAN [Concomitant]
     Active Substance: LOSARTAN
     Indication: Product used for unknown indication
     Dosage: 50 MG, BID,50MG TABLET BY MOUTH AT 4 AM AND 8 AM DAILY
  7. HYDROCODONE [Concomitant]
     Active Substance: HYDROCODONE
     Indication: Rheumatoid arthritis
     Dosage: 5/325 MG TABLETS BY MOUTH DURING THE NIGHT AND 1 - 2 TABLETS IN THE AFTERNOON
  8. HYDROCODONE [Concomitant]
     Active Substance: HYDROCODONE
     Indication: Osteoarthritis

REACTIONS (10)
  - Dyspnoea [Unknown]
  - Chest discomfort [Unknown]
  - Oxygen saturation decreased [Unknown]
  - Extrasystoles [Unknown]
  - Chest pain [Unknown]
  - Emotional distress [Unknown]
  - Osteoarthritis [Unknown]
  - Drug ineffective [Unknown]
  - Overdose [Unknown]
  - Product complaint [Unknown]
